FAERS Safety Report 8400588-X (Version None)
Quarter: 2012Q2

REPORT INFORMATION
  Report Type: 
  Country: None (occurrence: None)
  Receive Date: 20120531
  Receipt Date: 20120523
  Transmission Date: 20120825
  Serious: Yes (Other)
  Sender: FDA-Public Use
  Company Number: CHPA2012IL011198

PATIENT
  Sex: Female

DRUGS (1)
  1. OTRIVIN [Suspect]
     Indication: NASOPHARYNGITIS
     Dosage: A FEW TIMES INTO EACH NOSTRIL, ONCE
     Route: 045
     Dates: start: 20120401, end: 20120401

REACTIONS (1)
  - ANOSMIA [None]
